FAERS Safety Report 4924553-X (Version None)
Quarter: 2006Q1

REPORT INFORMATION
  Report Type: 
  Country: None (occurrence: None)
  Receive Date: 20060227
  Receipt Date: 20060217
  Transmission Date: 20060701
  Serious: Yes (Death)
  Sender: FDA-Public Use
  Company Number: GB-BOEHRINGER INGELHEIM PHARMACEUTICALS, INC.-2006-UK-00602UK

PATIENT
  Sex: Male

DRUGS (10)
  1. COMBIVENT [Suspect]
     Indication: CHRONIC OBSTRUCTIVE PULMONARY DISEASE
  2. SIOPEL CREAM [Concomitant]
  3. SALBUTAMOL [Concomitant]
     Dosage: 2 DOSES AS NEEDED
     Route: 055
  4. QUININE SULPHATE [Concomitant]
     Dosage: 300 MG AS NEEDED
  5. FRUSEMIDE [Concomitant]
     Dosage: 40 MG AS DIRECTED
  6. GLICLAZIDE [Concomitant]
     Dosage: 80 MG ONCE DAILY
  7. BECLOMETHASONE DIPROPIONATE [Concomitant]
     Dosage: 2 PUFFS TWICE DAILY
     Route: 045
  8. DICLOFENAC [Concomitant]
     Dosage: ONE / TWO TO BE TAKEN THREE TIMES A DAY
     Route: 055
  9. BECLOMETHASONE DIPROPIONATE [Concomitant]
     Dosage: 2 DOSES TWICE DAILY
     Route: 055
  10. OXYGEN [Concomitant]
     Dosage: BP CYLINDER 1360 LITRES

REACTIONS (2)
  - CHRONIC OBSTRUCTIVE PULMONARY DISEASE [None]
  - DEATH [None]
